FAERS Safety Report 6819645-4 (Version None)
Quarter: 2010Q3

REPORT INFORMATION
  Report Type: 
  Country: None (occurrence: None)
  Receive Date: 20100707
  Receipt Date: 20091205
  Transmission Date: 20110219
  Serious: No
  Sender: FDA-Public Use
  Company Number: US-PFIZER INC-2009197354

PATIENT
  Sex: Male
  Weight: 122.45 kg

DRUGS (9)
  1. TIKOSYN [Suspect]
     Indication: ATRIAL FIBRILLATION
     Dosage: 250 UG, 2X/DAY
     Dates: start: 20090212
  2. LANOXIN [Concomitant]
     Dosage: UNK
  3. CARVEDILOL [Concomitant]
     Dosage: UNK
  4. WARFARIN [Concomitant]
     Dosage: UNK
  5. GLYBURIDE [Concomitant]
     Dosage: UNK
  6. DILTIAZEM [Concomitant]
     Dosage: UNK
  7. VITAMIN D [Concomitant]
  8. SIMVASTATIN [Concomitant]
     Dosage: UNK
  9. INSULIN [Concomitant]
     Dosage: UNK

REACTIONS (2)
  - DRUG DISPENSING ERROR [None]
  - GOUT [None]
